FAERS Safety Report 5024962-7 (Version None)
Quarter: 2006Q2

REPORT INFORMATION
  Report Type: 
  Country: None (occurrence: None)
  Receive Date: 20060607
  Receipt Date: 20060524
  Transmission Date: 20061013
  Serious: Yes (Hospitalization)
  Sender: FDA-Public Use
  Company Number: 8017210

PATIENT
  Age: 61 Year
  Sex: Male

DRUGS (5)
  1. KEPPRA [Suspect]
     Dosage: 500 MG 2/D PO
     Route: 048
     Dates: start: 20050615, end: 20060330
  2. TEGRETOL [Suspect]
     Dosage: 2 DF /D PO
     Route: 048
  3. DI-HYDAN [Suspect]
     Dosage: 1 DF /D PO
     Route: 048
  4. RIVOTRIL [Suspect]
     Dosage: 25 DF /D PO
     Route: 048
  5. OGAST [Suspect]
     Dosage: 1 DF /D PO
     Route: 048

REACTIONS (7)
  - ABDOMINAL PAIN [None]
  - CONDITION AGGRAVATED [None]
  - CONVULSION [None]
  - DRUG DEPENDENCE [None]
  - GASTROOESOPHAGEAL REFLUX DISEASE [None]
  - MELAENA [None]
  - RHINALGIA [None]
